FAERS Safety Report 19313336 (Version 1)
Quarter: 2021Q2

REPORT INFORMATION
  Report Type: Spontaneous
  Country: US (occurrence: US)
  Receive Date: 20210527
  Receipt Date: 20210527
  Transmission Date: 20210717
  Serious: Yes (Hospitalization)
  Sender: FDA-Public Use
  Company Number: None

PATIENT
  Age: 63 Year
  Weight: 67.9 kg

DRUGS (4)
  1. DOXIL [Suspect]
     Active Substance: DOXORUBICIN HYDROCHLORIDE
     Dates: end: 20210406
  2. HYDROCODONE [Suspect]
     Active Substance: HYDROCODONE
  3. ROXANOL [Suspect]
     Active Substance: MORPHINE SULFATE
  4. BEVACIZUMAB (RHUMAB VEGF) [Suspect]
     Active Substance: BEVACIZUMAB
     Dates: end: 20210316

REACTIONS (7)
  - Vomiting [None]
  - Abdominal pain [None]
  - Back pain [None]
  - Dyspnoea [None]
  - Nausea [None]
  - Chest pain [None]
  - Abdominal pain lower [None]

NARRATIVE: CASE EVENT DATE: 20210512
